FAERS Safety Report 23881518 (Version 2)
Quarter: 2024Q3

REPORT INFORMATION
  Report Type: Spontaneous
  Country: US (occurrence: US)
  Receive Date: 20240521
  Receipt Date: 20240723
  Transmission Date: 20241017
  Serious: No
  Sender: STEMLINE THERAPEUTICS
  Company Number: US-Stemline Therapeutics, Inc.-2024ST001386

PATIENT
  Age: 67 Year
  Sex: Female

DRUGS (1)
  1. ORSERDU [Suspect]
     Active Substance: ELACESTRANT
     Indication: Product used for unknown indication
     Route: 048
     Dates: start: 20240213

REACTIONS (9)
  - Bone cancer [Unknown]
  - Pain [Unknown]
  - Aspartate aminotransferase abnormal [Unknown]
  - Red blood cell count abnormal [Unknown]
  - Dizziness [Unknown]
  - Arthralgia [Not Recovered/Not Resolved]
  - Flushing [Not Recovered/Not Resolved]
  - Blood creatinine increased [Unknown]
  - Malignant neoplasm progression [Unknown]
